FAERS Safety Report 8307225-3 (Version None)
Quarter: 2012Q1

REPORT INFORMATION
  Report Type: 
  Country: None (occurrence: None)
  Receive Date: 20120327
  Receipt Date: 20090701
  Transmission Date: 20120608
  Serious: Yes (Hospitalization)
  Sender: FDA-Public Use
  Company Number: PHEH2009US07063

PATIENT
  Sex: Female

DRUGS (9)
  1. GLEEVEC [Suspect]
     Indication: GASTRIC CANCER
     Dosage: 400 MG, QD, ORAL
     Route: 048
     Dates: start: 20080501
  2. ARANESP [Concomitant]
  3. AMLODIPINE BESYLATE [Concomitant]
  4. MARINOL [Concomitant]
  5. ARICEPT [Concomitant]
  6. METFORMIN HCL [Concomitant]
  7. METOPROLOL TARTRATE [Concomitant]
  8. REGLAN /USA/ (METOCLOPRAMIDE HYDROCHLORIDE) [Concomitant]
  9. ALBUMIN ^BEHRING^ (ALBUMIN HUMAN) [Concomitant]

REACTIONS (2)
  - DEHYDRATION [None]
  - WEIGHT DECREASED [None]
